FAERS Safety Report 23788832 (Version 1)
Quarter: 2024Q2

REPORT INFORMATION
  Report Type: Spontaneous
  Country: US (occurrence: US)
  Receive Date: 20240426
  Receipt Date: 20240426
  Transmission Date: 20240715
  Serious: No
  Sender: FDA-Public Use
  Company Number: US-Millicent Holdings Ltd.-MILL20240862

PATIENT
  Age: 67 Year
  Sex: Female

DRUGS (5)
  1. FEMRING [Suspect]
     Active Substance: ESTRADIOL ACETATE
     Indication: Hot flush
     Dosage: 0.05 MG
     Route: 067
     Dates: start: 2023
  2. FEMRING [Suspect]
     Active Substance: ESTRADIOL ACETATE
     Indication: Insomnia
  3. FEMRING [Suspect]
     Active Substance: ESTRADIOL ACETATE
     Indication: Atrophic vulvovaginitis
  4. SYNTHROID [Concomitant]
     Active Substance: LEVOTHYROXINE SODIUM
     Indication: Hyperthyroidism
     Dosage: 137 MG
     Route: 048
  5. SYNTHROID [Concomitant]
     Active Substance: LEVOTHYROXINE SODIUM
     Indication: Graves^ disease

REACTIONS (4)
  - Atrophic vulvovaginitis [Not Recovered/Not Resolved]
  - Therapeutic product effect decreased [Not Recovered/Not Resolved]
  - Insomnia [Not Recovered/Not Resolved]
  - Condition aggravated [Not Recovered/Not Resolved]

NARRATIVE: CASE EVENT DATE: 20230101
